FAERS Safety Report 18514802 (Version 1)
Quarter: 2020Q4

REPORT INFORMATION
  Report Type: Spontaneous
  Country: AU (occurrence: AU)
  Receive Date: 20201117
  Receipt Date: 20201117
  Transmission Date: 20210114
  Serious: Yes (Other)
  Sender: FDA-Public Use
  Company Number: AU-BEH-2020124838

PATIENT
  Sex: Female

DRUGS (2)
  1. HIZENTRA [Suspect]
     Active Substance: HUMAN IMMUNOGLOBULIN G
     Dosage: 4 GRAM, QW
     Route: 065
     Dates: start: 20200421, end: 20200804
  2. INTRAGAM P [Suspect]
     Active Substance: HUMAN IMMUNOGLOBULIN G
     Dosage: 17.50 GRAM, QMT
     Route: 065
     Dates: start: 20200904

REACTIONS (2)
  - Anaemia [Unknown]
  - Hepatic enzyme abnormal [Unknown]
